FAERS Safety Report 15423559 (Version 3)
Quarter: 2022Q1

REPORT INFORMATION
  Report Type: Spontaneous
  Country: US (occurrence: US)
  Receive Date: 20180925
  Receipt Date: 20220222
  Transmission Date: 20220423
  Serious: Yes (Other)
  Sender: FDA-Public Use
  Company Number: US-PFIZER INC-2018382490

PATIENT
  Age: 71 Year
  Sex: Female

DRUGS (3)
  1. IBRANCE [Suspect]
     Active Substance: PALBOCICLIB
     Dosage: 125 MG, UNK
  2. IBRANCE [Suspect]
     Active Substance: PALBOCICLIB
     Dosage: 100 MG, UNK
  3. IBRANCE [Suspect]
     Active Substance: PALBOCICLIB
     Dosage: 75 MG

REACTIONS (9)
  - Neuropathy peripheral [Unknown]
  - White blood cell count decreased [Unknown]
  - Asthenia [Unknown]
  - Pyrexia [Unknown]
  - Platelet count decreased [Unknown]
  - Malaise [Unknown]
  - Somnolence [Unknown]
  - Sedation [Unknown]
  - Burning sensation [Unknown]

NARRATIVE: CASE EVENT DATE: 20180101
